FAERS Safety Report 14977130 (Version 1)
Quarter: 2018Q2

REPORT INFORMATION
  Report Type: Report from Study
  Country: None (occurrence: TR)
  Receive Date: 20180606
  Receipt Date: 20180606
  Transmission Date: 20180711
  Serious: Yes (Hospitalization, Other)
  Sender: FDA-Public Use
  Company Number: TR-ABBVIE-18K-161-2377884-00

PATIENT
  Age: 71 Year
  Sex: Male
  Weight: 80 kg

DRUGS (8)
  1. DUODOPA [Suspect]
     Active Substance: CARBIDOPA\LEVODOPA
     Indication: PARKINSON^S DISEASE
     Dosage: MORNING DOSE: 6 ML??CONTINUING DOSE: 3.20 ML??EXTRA DOSE: 2 ML
     Route: 050
     Dates: start: 20160812
  2. TAMPROST MR [Concomitant]
     Indication: PROSTATIC DISORDER
     Route: 048
     Dates: start: 2012
  3. LEPONEX [Concomitant]
     Active Substance: CLOZAPINE
     Indication: HALLUCINATION
     Route: 048
     Dates: start: 20180328, end: 20180530
  4. MADOPAR HBS [Concomitant]
     Active Substance: BENSERAZIDE HYDROCHLORIDE\LEVODOPA
     Indication: PARKINSON^S DISEASE
     Route: 048
     Dates: start: 2010, end: 20180530
  5. DESAL [Concomitant]
     Active Substance: FUROSEMIDE
     Indication: PROSTATIC DISORDER
     Route: 048
     Dates: start: 2012
  6. PK MERZ [Concomitant]
     Active Substance: AMANTADINE SULFATE
     Indication: PARKINSON^S DISEASE
     Route: 048
     Dates: start: 2012, end: 20180530
  7. ARLEC [Concomitant]
     Indication: HYPERTENSION
     Route: 048
     Dates: start: 2010
  8. GLIFOR [Concomitant]
     Active Substance: METFORMIN HYDROCHLORIDE
     Indication: DIABETES MELLITUS
     Route: 048
     Dates: start: 2008

REACTIONS (4)
  - Lung infection [Unknown]
  - C-reactive protein increased [Unknown]
  - Decreased appetite [Not Recovered/Not Resolved]
  - Asthenia [Not Recovered/Not Resolved]

NARRATIVE: CASE EVENT DATE: 20180530
